FAERS Safety Report 4584695-8 (Version None)
Quarter: 2005Q1

REPORT INFORMATION
  Report Type: 
  Country: None (occurrence: None)
  Receive Date: 20050211
  Receipt Date: 20050126
  Transmission Date: 20050727
  Serious: Yes (Other)
  Sender: FDA-Public Use
  Company Number: DSA_25714_2005

PATIENT

DRUGS (2)
  1. DILTIAZEM [Suspect]
     Indication: ILL-DEFINED DISORDER
     Dosage: DF
  2. PROCARDIA [Suspect]
     Indication: ILL-DEFINED DISORDER
     Dosage: DF

REACTIONS (1)
  - ILEUS PARALYTIC [None]
